APPROVED DRUG PRODUCT: HYDROXOCOBALAMIN
Active Ingredient: HYDROXOCOBALAMIN
Strength: 1MG/ML
Dosage Form/Route: INJECTABLE;INJECTION
Application: A085998 | Product #001
Applicant: ACTAVIS LLC AN INDIRECT WHOLLY OWNED SUB OF TEVA PHARMACEUTICALS USA INC
Approved: Approved Prior to Jan 1, 1982 | RLD: No | RS: Yes | Type: RX